FAERS Safety Report 17709820 (Version 1)
Quarter: 2020Q2

REPORT INFORMATION
  Report Type: Report from Study
  Country: GB (occurrence: GB)
  Receive Date: 20200427
  Receipt Date: 20200427
  Transmission Date: 20200714
  Serious: Yes (Other)
  Sender: FDA-Public Use
  Company Number: GB-BRISTOL-MYERS SQUIBB COMPANY-BMS-2019-115022

PATIENT
  Sex: Female

DRUGS (1)
  1. ABATACEPT [Suspect]
     Active Substance: ABATACEPT
     Indication: RHEUMATOID ARTHRITIS
     Dosage: 125 MILLIGRAM, QWK
     Route: 058
     Dates: start: 20160321

REACTIONS (6)
  - Condition aggravated [Unknown]
  - Dysphagia [Unknown]
  - Dizziness [Unknown]
  - Diabetes mellitus [Unknown]
  - Parkinson^s disease [Unknown]
  - Musculoskeletal stiffness [Unknown]
